FAERS Safety Report 14692215 (Version 1)
Quarter: 2018Q1

REPORT INFORMATION
  Report Type: Spontaneous
  Country: JP (occurrence: JP)
  Receive Date: 20180329
  Receipt Date: 20180329
  Transmission Date: 20180509
  Serious: No
  Sender: FDA-Public Use
  Company Number: JP-LUPIN PHARMACEUTICALS INC.-2017-05843

PATIENT
  Age: 50 Year
  Sex: Male

DRUGS (9)
  1. FLUNITRAZEPAM 2 MG TABLET [Suspect]
     Active Substance: FLUNITRAZEPAM
     Indication: INSOMNIA
     Dosage: 2 MG, QD
     Route: 048
     Dates: start: 201505
  2. HIRNAMIN                           /00038601/ [Suspect]
     Active Substance: LEVOMEPROMAZINE
     Dosage: 5 MG, UNK
     Route: 048
     Dates: start: 201706
  3. TRIAZOLAM TEBA [Suspect]
     Active Substance: TRIAZOLAM
     Indication: INSOMNIA
     Dosage: 0.5 MG, QD
     Route: 048
     Dates: start: 201505
  4. SERTRALINE 25MG TABLET ^AMEL^ [Suspect]
     Active Substance: SERTRALINE HYDROCHLORIDE
     Indication: DEPRESSION
     Dosage: 25 MG, QD
     Route: 048
     Dates: start: 201505
  5. SULPIRIDE 50MG TABLET [Suspect]
     Active Substance: SULPIRIDE
     Indication: DEPRESSION
     Dosage: 100 MG, QD
     Route: 048
     Dates: start: 201705
  6. SENIRAN [Suspect]
     Active Substance: BROMAZEPAM
     Indication: DEPRESSION
     Dosage: 4 MG, QD
     Route: 048
     Dates: start: 201505
  7. TRAZODONE HCL 25 MG TABLET [Suspect]
     Active Substance: TRAZODONE HYDROCHLORIDE
     Indication: DEPRESSION
     Dosage: 50 MG, UNK
     Route: 048
     Dates: start: 201505
  8. LORAZEPAM TABLET [SAWAI] [Suspect]
     Active Substance: LORAZEPAM
     Indication: DEPRESSION
     Dosage: 1 MG, QD
     Route: 048
     Dates: start: 201505
  9. HIRNAMIN                           /00038601/ [Suspect]
     Active Substance: LEVOMEPROMAZINE
     Indication: INSOMNIA
     Dosage: 5 MG, UNK
     Route: 048
     Dates: start: 201505

REACTIONS (1)
  - Blood pressure decreased [Recovered/Resolved]

NARRATIVE: CASE EVENT DATE: 20170708
